FAERS Safety Report 9369321 (Version 1)
Quarter: 2013Q2

REPORT INFORMATION
  Report Type: Spontaneous
  Country: DE (occurrence: DE)
  Receive Date: 20130626
  Receipt Date: 20130626
  Transmission Date: 20140414
  Serious: Yes (Congenital Anomaly)
  Sender: FDA-Public Use
  Company Number: DE-TEVA-412586GER

PATIENT
  Age: 0 Year
  Sex: Male

DRUGS (3)
  1. METHOTREXATE [Suspect]
     Route: 064
  2. INFLIXIMAB [Suspect]
     Route: 064
  3. FOLS?URE [Concomitant]
     Route: 064

REACTIONS (2)
  - Pelvi-ureteric obstruction [Recovered/Resolved with Sequelae]
  - Small for dates baby [Unknown]
